FAERS Safety Report 25871339 (Version 1)
Quarter: 2025Q4

REPORT INFORMATION
  Report Type: Spontaneous
  Country: US (occurrence: US)
  Receive Date: 20251001
  Receipt Date: 20251001
  Transmission Date: 20260118
  Serious: Yes (Other)
  Sender: EISAI
  Company Number: US-Eisai-EC-2025-197577

PATIENT
  Age: 78 Year
  Sex: Female

DRUGS (1)
  1. LEQEMBI [Suspect]
     Active Substance: LECANEMAB-IRMB
     Indication: Dementia Alzheimer^s type
     Dosage: ADDITIONAL LOT NUMBERS FOR EACH INFUSION NOTED BELOW:?2ND INFUSION: 153150474?3RD INFUSION: 153491316?4TH INFUSION: 153838701
     Route: 042
     Dates: start: 20250624, end: 20250805

REACTIONS (1)
  - Cerebrovascular accident [Recovered/Resolved]

NARRATIVE: CASE EVENT DATE: 20250701
